FAERS Safety Report 20131314 (Version 1)
Quarter: 2021Q4

REPORT INFORMATION
  Report Type: Spontaneous
  Country: US (occurrence: None)
  Receive Date: 20211130
  Receipt Date: 20211130
  Transmission Date: 20220303
  Serious: Yes (Other)
  Sender: FDA-Public Use
  Company Number: None

PATIENT
  Age: 59 Year
  Sex: Male
  Weight: 100.35 kg

DRUGS (20)
  1. ALFUZOSIN HYDROCHLORIDE EXTENDED RELEASE [Suspect]
     Active Substance: ALFUZOSIN HYDROCHLORIDE
     Indication: Benign prostatic hyperplasia
     Dosage: OTHER QUANTITY : 1 TABLET(S);?FREQUENCY : DAILY;?
     Route: 048
  2. SOTALOL (BETAPACE) [Concomitant]
  3. ALFUZOSIN (UROXATRAL) [Concomitant]
  4. PROSCAR [Concomitant]
     Active Substance: FINASTERIDE
  5. SILDENAFIL CITRATE (VIAGRA) [Concomitant]
  6. CLOBETASOL PROPIONATE (TEMOVATE) [Concomitant]
  7. AMLACTIN (LACTIC ACID) [Concomitant]
  8. BETA CAROTENE [Concomitant]
     Active Substance: BETA CAROTENE
  9. CALCIUM 600 MG W/VITAMIN D3 [Concomitant]
  10. COLLAGEN PEPTIDES [Concomitant]
  11. ECHINACEA [Concomitant]
  12. HYPERBIOTICS PRO-15 [Concomitant]
  13. KRILL OIL [Concomitant]
  14. MELATONIN [Concomitant]
  15. METAMUCIL [Concomitant]
  16. PSYLLIUM FIBER [Concomitant]
  17. MULTI-VITAMIN/MINERAL SENIOR [Concomitant]
  18. NERVE RENEW ANTIOXIDANT [Concomitant]
  19. STANDARD PROCESS CARDIO-PLUS [Concomitant]
  20. VITAMIN E [Concomitant]
     Active Substance: .ALPHA.-TOCOPHEROL

REACTIONS (3)
  - Product shape issue [None]
  - Foreign body in throat [None]
  - Product use complaint [None]
